FAERS Safety Report 24458778 (Version 1)
Quarter: 2024Q4

REPORT INFORMATION
  Report Type: Spontaneous
  Country: US (occurrence: None)
  Receive Date: 20241017
  Receipt Date: 20241017
  Transmission Date: 20250115
  Serious: Yes (Hospitalization)
  Sender: Public
  Company Number: None

PATIENT
  Age: 89 Year
  Sex: Male

DRUGS (2)
  1. APIXABAN [Suspect]
     Active Substance: APIXABAN
     Indication: Gastrointestinal haemorrhage
     Dosage: FREQUENCY : TWICE A DAY;?
     Route: 048
     Dates: start: 20210415
  2. ASPIRIN [Concomitant]
     Active Substance: ASPIRIN

REACTIONS (2)
  - Lower gastrointestinal haemorrhage [None]
  - Constipation [None]

NARRATIVE: CASE EVENT DATE: 20240307
